FAERS Safety Report 8200151-X (Version None)
Quarter: 2012Q1

REPORT INFORMATION
  Report Type: 
  Country: None (occurrence: None)
  Receive Date: 20120306
  Receipt Date: 20120217
  Transmission Date: 20120608
  Serious: Yes (Life-Threatening, Other)
  Sender: FDA-Public Use
  Company Number: 2012P1004759

PATIENT
  Age: 75 Year
  Sex: Male

DRUGS (23)
  1. BESILATE [Concomitant]
  2. ERGOCALCIFEROL [Concomitant]
  3. FRAGMIN [Suspect]
     Indication: THROMBOSIS PROPHYLAXIS
     Dosage: 5,000 IU;QD;SC
     Route: 058
     Dates: start: 20120111, end: 20120114
  4. NICOTINAMINE [Concomitant]
  5. AMLODIPINE [Concomitant]
  6. PERINDOPRIL ERBUMINE [Concomitant]
  7. FOLIC ACID [Concomitant]
  8. PANTHENOL [Concomitant]
  9. MOMETASONE FUROATE [Concomitant]
  10. CLINDAMYCIN [Concomitant]
  11. BETACAROTENE [Concomitant]
  12. RETINOL [Concomitant]
  13. GABAPENTIN [Concomitant]
  14. WARFARIN SODIUM [Suspect]
     Indication: THROMBOSIS PROPHYLAXIS
  15. ASCORBIC ACID [Concomitant]
  16. COPPER [Concomitant]
  17. ACETAMINOPHEN [Concomitant]
  18. MELOXICAM [Concomitant]
  19. ATORVASTATIN [Concomitant]
  20. CALCIUM [Concomitant]
  21. CLONAZEPAM [Concomitant]
  22. RIBOFLAVIN [Concomitant]
  23. THIAMINE HYDROCHLORIDE [Concomitant]

REACTIONS (1)
  - PULMONARY EMBOLISM [None]
